FAERS Safety Report 6393688-X (Version None)
Quarter: 2009Q4

REPORT INFORMATION
  Report Type: 
  Country: None (occurrence: None)
  Receive Date: 20091008
  Receipt Date: 20091002
  Transmission Date: 20100525
  Serious: Yes (Hospitalization)
  Sender: FDA-Public Use
  Company Number: US-JNJFOC-20091001553

PATIENT
  Sex: Female

DRUGS (1)
  1. DURAGESIC-100 [Suspect]
     Indication: PAIN
     Route: 062

REACTIONS (4)
  - INAPPROPRIATE SCHEDULE OF DRUG ADMINISTRATION [None]
  - LIMB CRUSHING INJURY [None]
  - ROAD TRAFFIC ACCIDENT [None]
  - UPPER LIMB FRACTURE [None]
